FAERS Safety Report 7237738-7 (Version None)
Quarter: 2011Q1

REPORT INFORMATION
  Report Type: 
  Country: None (occurrence: None)
  Receive Date: 20110121
  Receipt Date: 20110118
  Transmission Date: 20110831
  Serious: Yes (Death)
  Sender: FDA-Public Use
  Company Number: PHFR2011GB00444

PATIENT
  Sex: Male

DRUGS (5)
  1. NIFEDIPINE [Concomitant]
     Indication: RAYNAUD'S PHENOMENON
     Dosage: 15 MG
     Route: 048
     Dates: start: 20080101
  2. FERROUS FUMARATE [Concomitant]
     Dosage: 630 MG
     Route: 048
     Dates: start: 20100428, end: 20100727
  3. CLOZARIL [Suspect]
     Indication: SCHIZOPHRENIA
     Dosage: 550 MG
     Route: 048
     Dates: start: 19970310
  4. ASPIRIN [Concomitant]
     Indication: CARDIOVASCULAR DISORDER
     Dosage: 75 MG
     Route: 048
  5. OMEPRAZOLE [Concomitant]
     Indication: DYSPEPSIA
     Dosage: 20 MG
     Route: 048
     Dates: start: 20050701

REACTIONS (2)
  - CORONARY ARTERY OCCLUSION [None]
  - ARTERIOSCLEROSIS CORONARY ARTERY [None]
